FAERS Safety Report 4822789-X (Version None)
Quarter: 2005Q4

REPORT INFORMATION
  Report Type: 
  Country: None (occurrence: None)
  Receive Date: 20051104
  Receipt Date: 20051019
  Transmission Date: 20060501
  Serious: Yes (Hospitalization)
  Sender: FDA-Public Use
  Company Number: DSA_27338_2005

PATIENT
  Age: 71 Year
  Sex: Female

DRUGS (4)
  1. DILTIAZEM HCL [Suspect]
     Indication: MYOCARDIAL ISCHAEMIA
     Dosage: 240 MG Q DAY PO
     Route: 048
     Dates: end: 20040908
  2. BENDROFLUMETHIAZIDE [Suspect]
     Indication: MYOCARDIAL ISCHAEMIA
     Dosage: 2.5 MG Q DAY PO
     Route: 048
     Dates: end: 20040908
  3. ZOLENDRONATE [Concomitant]
  4. DIGOXIN [Suspect]
     Indication: ATRIAL FIBRILLATION
     Dosage: 120 MCG Q DAY PO
     Route: 048
     Dates: start: 20040421, end: 20040908

REACTIONS (5)
  - ATRIOVENTRICULAR BLOCK COMPLETE [None]
  - DIZZINESS [None]
  - FALL [None]
  - HYPOKALAEMIA [None]
  - MYOCARDIAL ISCHAEMIA [None]
